FAERS Safety Report 21872290 (Version 2)
Quarter: 2023Q1

REPORT INFORMATION
  Report Type: Spontaneous
  Country: GB (occurrence: GB)
  Receive Date: 20230117
  Receipt Date: 20230201
  Transmission Date: 20230417
  Serious: Yes (Death, Other)
  Sender: FDA-Public Use
  Company Number: None

PATIENT
  Age: 100 Year
  Sex: Male

DRUGS (1)
  1. IBRUTINIB [Suspect]
     Active Substance: IBRUTINIB
     Indication: Product used for unknown indication
     Dosage: 420MG DAILY
     Route: 048
     Dates: start: 20210916

REACTIONS (3)
  - Death [Fatal]
  - Pleural effusion [Unknown]
  - Cardiac failure [Fatal]

NARRATIVE: CASE EVENT DATE: 20220904
